FAERS Safety Report 13667055 (Version 1)
Quarter: 2017Q2

REPORT INFORMATION
  Report Type: Spontaneous
  Country: US (occurrence: US)
  Receive Date: 20170619
  Receipt Date: 20170619
  Transmission Date: 20170830
  Serious: No
  Sender: FDA-Public Use
  Company Number: US-ROCHE-1401662

PATIENT
  Sex: Female

DRUGS (1)
  1. XELODA [Suspect]
     Active Substance: CAPECITABINE
     Indication: CERVIX CARCINOMA
     Dosage: TWICE DAILY FOR 2 WEEKS ON AND 2 WEEK OFF
     Route: 048
     Dates: start: 20140121

REACTIONS (2)
  - Decreased appetite [Recovering/Resolving]
  - Fatigue [Recovering/Resolving]
